FAERS Safety Report 16076215 (Version 1)
Quarter: 2019Q1

REPORT INFORMATION
  Report Type: Spontaneous
  Country: SE (occurrence: SE)
  Receive Date: 20190315
  Receipt Date: 20190315
  Transmission Date: 20190418
  Serious: Yes (Other)
  Sender: FDA-Public Use
  Company Number: SE-ACCORD-112757

PATIENT
  Age: 50 Year
  Sex: Female
  Weight: 67.5 kg

DRUGS (3)
  1. QUETIAPINE. [Suspect]
     Active Substance: QUETIAPINE
     Indication: BIPOLAR DISORDER
     Dates: start: 201206, end: 20130220
  2. SEROQUEL [Suspect]
     Active Substance: QUETIAPINE FUMARATE
     Indication: BIPOLAR DISORDER
     Dosage: STRENGTH 50 MG
     Dates: start: 201206, end: 20130220
  3. LITHIONIT [Suspect]
     Active Substance: LITHIUM SULFATE
     Indication: BIPOLAR DISORDER
     Dosage: STRENGTH 42 MG
     Dates: start: 201206

REACTIONS (2)
  - Headache [Not Recovered/Not Resolved]
  - Visual impairment [Not Recovered/Not Resolved]

NARRATIVE: CASE EVENT DATE: 201211
